FAERS Safety Report 4932296-1 (Version None)
Quarter: 2006Q1

REPORT INFORMATION
  Report Type: 
  Country: None (occurrence: None)
  Receive Date: 20060228
  Receipt Date: 20060203
  Transmission Date: 20060701
  Serious: No
  Sender: FDA-Public Use
  Company Number: CA200601005129

PATIENT
  Age: 45 Year
  Sex: Male
  Weight: 96.1 kg

DRUGS (2)
  1. STRATTERA [Suspect]
     Indication: ATTENTION DEFICIT/HYPERACTIVITY DISORDER
     Dosage: 40 MG,
     Dates: start: 20051206, end: 20051220
  2. CONCERTA [Concomitant]

REACTIONS (3)
  - DEPRESSION [None]
  - STRESS [None]
  - SUICIDAL IDEATION [None]
